FAERS Safety Report 15500821 (Version 2)
Quarter: 2018Q4

REPORT INFORMATION
  Report Type: Report from Study
  Country: US (occurrence: US)
  Receive Date: 20181015
  Receipt Date: 20181109
  Transmission Date: 20190205
  Serious: Yes (Other)
  Sender: FDA-Public Use
  Company Number: US-MYLANLABS-2018M1073144

PATIENT
  Age: 54 Year
  Sex: Female
  Weight: 60.78 kg

DRUGS (2)
  1. GLATIRAMER ACETATE INJECTION [Suspect]
     Active Substance: GLATIRAMER ACETATE
     Dosage: 40 MG, 3XW
     Route: 058
     Dates: start: 20180926, end: 20180928
  2. GLATIRAMER ACETATE INJECTION [Suspect]
     Active Substance: GLATIRAMER ACETATE
     Indication: RELAPSING-REMITTING MULTIPLE SCLEROSIS
     Dosage: 40 MG, 3XW
     Route: 058
     Dates: start: 20180820

REACTIONS (11)
  - Depressed mood [Unknown]
  - Injection site bruising [Unknown]
  - Abdominal discomfort [Unknown]
  - Nausea [Unknown]
  - Loss of consciousness [Unknown]
  - Injection site erythema [Unknown]
  - Seizure [Unknown]
  - Back pain [Not Recovered/Not Resolved]
  - Injection site infection [Unknown]
  - Malaise [Unknown]
  - Injection site inflammation [Unknown]

NARRATIVE: CASE EVENT DATE: 201809
